FAERS Safety Report 19037585 (Version 1)
Quarter: 2021Q1

REPORT INFORMATION
  Report Type: Spontaneous
  Country: US (occurrence: US)
  Receive Date: 20210322
  Receipt Date: 20210322
  Transmission Date: 20210420
  Serious: No
  Sender: FDA-Public Use
  Company Number: US-APNAR-000083

PATIENT
  Sex: Male

DRUGS (1)
  1. BUPROPION. [Suspect]
     Active Substance: BUPROPION
     Indication: PRODUCT USED FOR UNKNOWN INDICATION
     Dosage: ONE PILL PER DAY AND HAD JUST STARTED THE 2 PILLS/DAY REGIMEN
     Dates: start: 20200820, end: 20200901

REACTIONS (1)
  - Tinnitus [Not Recovered/Not Resolved]

NARRATIVE: CASE EVENT DATE: 20200830
